FAERS Safety Report 9995790 (Version 2)
Quarter: 2014Q2

REPORT INFORMATION
  Report Type: Spontaneous
  Country: US (occurrence: US)
  Receive Date: 20140311
  Receipt Date: 20140513
  Transmission Date: 20141212
  Serious: Yes (Other)
  Sender: FDA-Public Use
  Company Number: US-TEVA-467671USA

PATIENT
  Age: 42 Year
  Sex: Female
  Weight: 68.1 kg

DRUGS (4)
  1. PARAGARD 380A [Suspect]
     Indication: CONTRACEPTION
     Route: 015
     Dates: start: 20130503, end: 20140306
  2. CRESTOR [Concomitant]
     Indication: BLOOD CHOLESTEROL INCREASED
  3. RESTASIS [Concomitant]
     Indication: SYNCOPE
  4. HYDROCHLOROTHIAZIDE [Concomitant]
     Indication: HYPERTENSION

REACTIONS (6)
  - Device dislocation [Recovered/Resolved]
  - Menorrhagia [Recovered/Resolved]
  - Metrorrhagia [Unknown]
  - Menstruation irregular [Unknown]
  - Coital bleeding [Recovered/Resolved]
  - Pelvic pain [Recovered/Resolved]
